FAERS Safety Report 19832390 (Version 1)
Quarter: 2021Q3

REPORT INFORMATION
  Report Type: Spontaneous
  Country: US (occurrence: US)
  Receive Date: 20210915
  Receipt Date: 20210915
  Transmission Date: 20211014
  Serious: Yes (Death)
  Sender: FDA-Public Use
  Company Number: None

PATIENT
  Age: 55 Year
  Sex: Male
  Weight: 140 kg

DRUGS (1)
  1. BARICITINIB. [Suspect]
     Active Substance: BARICITINIB
     Indication: COVID-19
     Route: 048
     Dates: start: 20210905, end: 20210910

REACTIONS (4)
  - Hypoxia [None]
  - Pulmonary embolism [None]
  - Dyspnoea [None]
  - Cardio-respiratory arrest [None]

NARRATIVE: CASE EVENT DATE: 20210910
